FAERS Safety Report 9236089 (Version 1)
Quarter: 2013Q2

REPORT INFORMATION
  Report Type: Spontaneous
  Country: US (occurrence: None)
  Receive Date: 20130416
  Receipt Date: 20130416
  Transmission Date: 20140414
  Serious: Yes (Life-Threatening, Hospitalization)
  Sender: FDA-Public Use
  Company Number: None

PATIENT
  Age: 76 Year
  Sex: Female
  Weight: 68.9 kg

DRUGS (13)
  1. LORAZEPAM 1 MG [Suspect]
     Indication: AGITATION
     Dosage: LORAZEPAM X1 PO?5/3, 6/2, 6/3
     Route: 048
  2. LORAZEPAM 1 MG [Suspect]
     Indication: PSYCHOTIC DISORDER
     Dosage: LORAZEPAM X1 PO?5/3, 6/2, 6/3
     Route: 048
  3. QUETIAPINE [Suspect]
     Indication: AGITATION
     Dosage: 25 MG X1 PO?5/31, 6/2, 6/3
     Route: 048
  4. QUETIAPINE [Suspect]
     Indication: PSYCHOTIC DISORDER
     Dosage: 25 MG X1 PO?5/31, 6/2, 6/3
     Route: 048
  5. D50 % [Concomitant]
  6. METOPROLOL [Concomitant]
  7. DIGOXIN [Concomitant]
  8. XOPENEX [Concomitant]
  9. NEBS [Concomitant]
  10. SPIRIVA INH [Concomitant]
  11. LISPRO  INSULIN [Concomitant]
  12. LOVENOX [Concomitant]
  13. MOMPO [Concomitant]

REACTIONS (1)
  - Respiratory failure [None]
